FAERS Safety Report 18605951 (Version 1)
Quarter: 2020Q4

REPORT INFORMATION
  Report Type: Spontaneous
  Country: FR (occurrence: FR)
  Receive Date: 20201211
  Receipt Date: 20201211
  Transmission Date: 20210114
  Serious: Yes (Hospitalization)
  Sender: FDA-Public Use
  Company Number: FR-MYLANLABS-2020M1100645

PATIENT
  Age: 10 Year
  Sex: Female
  Weight: 24 kg

DRUGS (4)
  1. EPIDIOLEX [Suspect]
     Active Substance: CANNABIDIOL
     Indication: LENNOX-GASTAUT SYNDROME
     Dosage: 480 MILLIGRAM, QD
     Route: 048
     Dates: start: 201912, end: 20201030
  2. URBANYL [Suspect]
     Active Substance: CLOBAZAM
     Indication: LENNOX-GASTAUT SYNDROME
     Dosage: 20 MILLIGRAM, QD
     Route: 048
     Dates: start: 202003, end: 20201103
  3. LAMOTRIGINE MYLAN 25 MG, COMPRIM? DISPERSIBLE [Suspect]
     Active Substance: LAMOTRIGINE
     Indication: LENNOX-GASTAUT SYNDROME
     Dosage: 50 MILLIGRAM, QD
     Route: 048
     Dates: start: 201901
  4. MICROPAKINE [Suspect]
     Active Substance: VALPROATE SODIUM
     Indication: LENNOX-GASTAUT SYNDROME
     Dosage: 500 MILLIGRAM, QD
     Route: 048
     Dates: start: 202003

REACTIONS (3)
  - Decreased appetite [Recovering/Resolving]
  - Weight decreased [Recovering/Resolving]
  - Coma [Recovered/Resolved]

NARRATIVE: CASE EVENT DATE: 202010
